FAERS Safety Report 8838852 (Version 2)
Quarter: 2012Q4

REPORT INFORMATION
  Report Type: 
  Country: US (occurrence: US)
  Receive Date: 20121015
  Receipt Date: 20121031
  Transmission Date: 20130627
  Serious: Yes (Hospitalization)
  Sender: FDA-Public Use
  Company Number: US-BIOGENIDEC-2012BI043374

PATIENT
  Age: 37 Year
  Sex: Female

DRUGS (9)
  1. TYSABRI [Suspect]
     Indication: MULTIPLE SCLEROSIS
     Route: 042
     Dates: start: 20120329, end: 20120816
  2. TYSABRI [Suspect]
     Indication: MULTIPLE SCLEROSIS
     Route: 042
     Dates: start: 20121015
  3. ELAVIL [Concomitant]
     Indication: PAIN
  4. WELLBUTRIN [Concomitant]
     Indication: DEPRESSION
  5. ESGIC [Concomitant]
     Indication: HEADACHE
  6. KEPPRA [Concomitant]
     Indication: CONVULSION
  7. ATIVAN [Concomitant]
     Indication: CONVULSION
  8. ATIVAN [Concomitant]
     Indication: ANXIETY
  9. TRILEPTAL [Concomitant]
     Indication: CONVULSION

REACTIONS (2)
  - Herpes simplex [Not Recovered/Not Resolved]
  - Meningitis [Recovered/Resolved]
